FAERS Safety Report 7162089-9 (Version None)
Quarter: 2010Q4

REPORT INFORMATION
  Report Type: 
  Country: None (occurrence: None)
  Receive Date: 20101215
  Receipt Date: 20101203
  Transmission Date: 20110411
  Serious: Yes (Hospitalization)
  Sender: FDA-Public Use
  Company Number: US-BAYER-201030356NA

PATIENT
  Sex: Female
  Weight: 58.957 kg

DRUGS (4)
  1. MIRENA [Suspect]
     Indication: CONTRACEPTION
     Dosage: FREQUENCY CONTINUOUS
     Route: 015
     Dates: start: 20080101, end: 20100810
  2. XANAX [Concomitant]
  3. PERCOCET [Concomitant]
  4. PREVACID [Concomitant]

REACTIONS (7)
  - AMENORRHOEA [None]
  - CERVICITIS [None]
  - DEVICE DISLOCATION [None]
  - GENITAL INFECTION BACTERIAL [None]
  - INFREQUENT BOWEL MOVEMENTS [None]
  - PREGNANCY WITH CONTRACEPTIVE DEVICE [None]
  - URINARY TRACT INFECTION [None]
